FAERS Safety Report 18672559 (Version 1)
Quarter: 2020Q4

REPORT INFORMATION
  Report Type: Spontaneous
  Country: US (occurrence: US)
  Receive Date: 20201229
  Receipt Date: 20201229
  Transmission Date: 20210114
  Serious: No
  Sender: FDA-Public Use
  Company Number: US-LUPIN PHARMACEUTICALS INC.-2020-04863

PATIENT

DRUGS (4)
  1. AMLODIPINE BESYLATE TABLETS USP, 2.5 MG [Suspect]
     Active Substance: AMLODIPINE BESYLATE
     Dosage: 4 DOSAGE FORM, QD (TWO IN MORNING AND TWO IN EVENING)
     Route: 065
     Dates: start: 20200719, end: 20200719
  2. AMLODIPINE BESYLATE TABLETS USP, 2.5 MG [Suspect]
     Active Substance: AMLODIPINE BESYLATE
     Indication: HYPERTENSION
     Dosage: 2.5 MILLIGRAM, QD
     Route: 065
     Dates: start: 201911
  3. AMLODIPINE BESYLATE TABLETS USP, 2.5 MG [Suspect]
     Active Substance: AMLODIPINE BESYLATE
     Dosage: 2 DOSAGE FORM, QD
     Route: 065
     Dates: start: 20200715, end: 20200717
  4. AMLODIPINE BESYLATE TABLETS USP, 2.5 MG [Suspect]
     Active Substance: AMLODIPINE BESYLATE
     Dosage: 3 DOSAGE FORM, QD (ONE IN MORNING AND TWO IN THE EVENING)
     Route: 065
     Dates: start: 20200718, end: 20200718

REACTIONS (2)
  - Hypertension [Recovered/Resolved]
  - Extra dose administered [Unknown]

NARRATIVE: CASE EVENT DATE: 20200713
